FAERS Safety Report 5983952-8 (Version None)
Quarter: 2008Q4

REPORT INFORMATION
  Report Type: 
  Country: None (occurrence: None)
  Receive Date: 20081208
  Receipt Date: 20081128
  Transmission Date: 20090506
  Serious: Yes (Disabling)
  Sender: FDA-Public Use
  Company Number: GB-ROCHE-599915

PATIENT
  Age: 29 Year
  Sex: Female
  Weight: 77 kg

DRUGS (3)
  1. XENICAL [Suspect]
     Indication: WEIGHT CONTROL
     Dosage: DOSE 1DF
     Route: 048
     Dates: start: 20081027, end: 20081031
  2. METHOTREXATE [Suspect]
     Indication: RHEUMATOID ARTHRITIS
     Route: 048
     Dates: start: 20031201
  3. FOLIC ACID [Concomitant]
     Route: 048
     Dates: start: 20031201

REACTIONS (1)
  - MUSCULOSKELETAL STIFFNESS [None]
